FAERS Safety Report 16862945 (Version 1)
Quarter: 2019Q3

REPORT INFORMATION
  Report Type: Spontaneous
  Country: US (occurrence: US)
  Receive Date: 20190927
  Receipt Date: 20190927
  Transmission Date: 20191005
  Serious: No
  Sender: FDA-Public Use
  Company Number: US-009507513-1909USA009911

PATIENT

DRUGS (1)
  1. PROSCAR [Suspect]
     Active Substance: FINASTERIDE
     Dosage: UNK
     Route: 061

REACTIONS (3)
  - Product preparation issue [Unknown]
  - No adverse event [Unknown]
  - Incorrect route of product administration [Unknown]
